FAERS Safety Report 9456588 (Version 1)
Quarter: 2013Q3

REPORT INFORMATION
  Report Type: Spontaneous
  Country: CN (occurrence: CN)
  Receive Date: 20130813
  Receipt Date: 20130813
  Transmission Date: 20140515
  Serious: Yes (Other)
  Sender: FDA-Public Use
  Company Number: CN-PFIZER INC-2013230637

PATIENT
  Age: 76 Year
  Sex: Male

DRUGS (2)
  1. TYGACIL [Suspect]
     Dosage: UNK
     Dates: start: 201307, end: 20130807
  2. CIPROFLOXACIN [Suspect]
     Dosage: UNK
     Dates: start: 20130807

REACTIONS (3)
  - Epilepsy [Not Recovered/Not Resolved]
  - Incorrect drug administration duration [Unknown]
  - Pyrexia [Not Recovered/Not Resolved]
